FAERS Safety Report 4937793-0 (Version None)
Quarter: 2006Q1

REPORT INFORMATION
  Report Type: 
  Country: None (occurrence: None)
  Receive Date: 20060306
  Receipt Date: 20060301
  Transmission Date: 20060701
  Serious: Yes (Other)
  Sender: FDA-Public Use
  Company Number: HQWYE634602FEB06

PATIENT
  Age: 5 Year
  Sex: Male
  Weight: 21.6 kg

DRUGS (8)
  1. TYGACIL [Suspect]
     Indication: KLEBSIELLA BACTERAEMIA
     Dosage: 20 MG 1X PER 12 HR, INTRAVENOUS
     Route: 042
     Dates: start: 20060125
  2. TYGACIL [Suspect]
     Indication: KLEBSIELLA INFECTION
     Dosage: 20 MG 1X PER 12 HR, INTRAVENOUS
     Route: 042
     Dates: start: 20060125
  3. TYGACIL [Suspect]
     Indication: MENINGITIS
     Dosage: 20 MG 1X PER 12 HR, INTRAVENOUS
     Route: 042
     Dates: start: 20060125
  4. AMIKACIN [Concomitant]
  5. IMIPENEM (IMIPENEM) [Concomitant]
  6. DILANTIN [Concomitant]
  7. CANCIDAS [Concomitant]
  8. HYDROCORTISONE [Concomitant]

REACTIONS (3)
  - BLADDER DISTENSION [None]
  - BLOOD UREA INCREASED [None]
  - DEAFNESS UNILATERAL [None]
